FAERS Safety Report 10150905 (Version 2)
Quarter: 2014Q2

REPORT INFORMATION
  Report Type: Spontaneous
  Country: IL (occurrence: IL)
  Receive Date: 20140502
  Receipt Date: 20140502
  Transmission Date: 20141212
  Serious: Yes (Hospitalization)
  Sender: FDA-Public Use
  Company Number: IL-ABBVIE-14P-082-1225503-00

PATIENT
  Age: 56 Year
  Sex: Male

DRUGS (5)
  1. DUODOPA [Suspect]
     Indication: PARKINSON^S DISEASE
     Dates: start: 201306
  2. KEMADRIN [Suspect]
     Indication: PARKINSON^S DISEASE
  3. VABEN [Concomitant]
     Indication: PRODUCT USED FOR UNKNOWN INDICATION
  4. SEROQUEL [Concomitant]
     Indication: PRODUCT USED FOR UNKNOWN INDICATION
     Dates: start: 20140409
  5. BONDORMIN [Concomitant]
     Indication: PRODUCT USED FOR UNKNOWN INDICATION

REACTIONS (5)
  - Discomfort [Unknown]
  - Blood sodium increased [Unknown]
  - Confusional state [Unknown]
  - Paranoia [Unknown]
  - Device occlusion [Unknown]
